FAERS Safety Report 6979786-8 (Version None)
Quarter: 2010Q3

REPORT INFORMATION
  Report Type: 
  Country: None (occurrence: None)
  Receive Date: 20100914
  Receipt Date: 20100907
  Transmission Date: 20110219
  Serious: Yes (Other)
  Sender: FDA-Public Use
  Company Number: US-BIOGENIDEC-2010BI029224

PATIENT
  Age: 39 Year
  Sex: Female

DRUGS (5)
  1. AVONEX [Suspect]
     Indication: MULTIPLE SCLEROSIS
     Route: 030
     Dates: start: 20060101
  2. CYMBALTA [Concomitant]
     Indication: EMOTIONAL DISORDER
     Route: 048
  3. CYMBALTA [Concomitant]
     Indication: STRESS
     Route: 048
  4. XANAX [Concomitant]
     Indication: EMOTIONAL DISORDER
     Route: 048
  5. XANAX [Concomitant]
     Indication: STRESS
     Route: 048

REACTIONS (8)
  - ABSCESS INTESTINAL [None]
  - DERMATITIS CONTACT [None]
  - EMOTIONAL DISORDER [None]
  - INFUSION SITE HAEMATOMA [None]
  - OPTIC NERVE DISORDER [None]
  - POOR VENOUS ACCESS [None]
  - PYELONEPHRITIS [None]
  - STRESS [None]
